FAERS Safety Report 23963839 (Version 1)
Quarter: 2024Q2

REPORT INFORMATION
  Report Type: Spontaneous
  Country: CN (occurrence: CN)
  Receive Date: 20240611
  Receipt Date: 20240611
  Transmission Date: 20240716
  Serious: Yes (Hospitalization)
  Sender: FDA-Public Use
  Company Number: CN-002147023-NVSC2024CN122195

PATIENT
  Age: 32 Year
  Sex: Female
  Weight: 44.5 kg

DRUGS (3)
  1. MYFORTIC [Suspect]
     Active Substance: MYCOPHENOLATE SODIUM
     Indication: Prophylaxis against transplant rejection
     Dosage: 360 MG, BID
     Route: 048
     Dates: start: 20240327, end: 20240510
  2. MYFORTIC [Suspect]
     Active Substance: MYCOPHENOLATE SODIUM
     Dosage: 180 MG, QD (DOSE REDUCED)
     Route: 065
     Dates: start: 20240511, end: 20240607
  3. TACROLIMUS [Concomitant]
     Active Substance: TACROLIMUS
     Indication: Immunosuppression
     Dosage: UNK (1MG IN THE MORNING, 1.5MG IN THE EVENING)
     Route: 065

REACTIONS (3)
  - Diarrhoea [Recovering/Resolving]
  - Frequent bowel movements [Recovering/Resolving]
  - Mass [Unknown]

NARRATIVE: CASE EVENT DATE: 20240509
